FAERS Safety Report 5922866-6 (Version None)
Quarter: 2008Q4

REPORT INFORMATION
  Report Type: 
  Country: None (occurrence: None)
  Receive Date: 20081017
  Receipt Date: 20081015
  Transmission Date: 20090506
  Serious: Yes (Life-Threatening, Hospitalization)
  Sender: FDA-Public Use
  Company Number: PHHY2008FR24878

PATIENT
  Sex: Female

DRUGS (3)
  1. LAMISIL [Suspect]
     Indication: FUNGAL INFECTION
     Dosage: 250 MG, QD
     Route: 048
  2. TRIPHASIL-21 [Suspect]
     Dosage: 1 DF, QD
     Route: 048
     Dates: start: 20020101
  3. NUTRITION SUPPLEMENTS [Suspect]
     Dosage: 3 DF, QD

REACTIONS (15)
  - ABDOMINAL DISTENSION [None]
  - ABDOMINAL PAIN LOWER [None]
  - APPENDICECTOMY [None]
  - DISSEMINATED INTRAVASCULAR COAGULATION [None]
  - ENTERITIS NECROTICANS [None]
  - EOSINOPHILIA [None]
  - ERYTHEMA [None]
  - ILEUS [None]
  - INTESTINAL RESECTION [None]
  - LAPAROSCOPY [None]
  - LAPAROTOMY [None]
  - LEUKOCYTOCLASTIC VASCULITIS [None]
  - PLEURAL EFFUSION [None]
  - STRESS ULCER [None]
  - VOMITING [None]
